FAERS Safety Report 18239168 (Version 1)
Quarter: 2020Q3

REPORT INFORMATION
  Report Type: Spontaneous
  Country: US (occurrence: US)
  Receive Date: 20200907
  Receipt Date: 20200907
  Transmission Date: 20201103
  Serious: No
  Sender: FDA-Public Use
  Company Number: US-TEVA-2020-US-1824012

PATIENT
  Sex: Male

DRUGS (2)
  1. CLONAZEPAM TEVA [Suspect]
     Active Substance: CLONAZEPAM
     Route: 065
     Dates: start: 202008
  2. CLONAZEPAM TEVA [Suspect]
     Active Substance: CLONAZEPAM
     Route: 065

REACTIONS (2)
  - Drug ineffective [Unknown]
  - Product availability issue [Unknown]

NARRATIVE: CASE EVENT DATE: 202008
